FAERS Safety Report 9450049 (Version 2)
Quarter: 2013Q3

REPORT INFORMATION
  Report Type: Spontaneous
  Country: JP (occurrence: JP)
  Receive Date: 20130809
  Receipt Date: 20130902
  Transmission Date: 20140515
  Serious: Yes (Other)
  Sender: FDA-Public Use
  Company Number: JP-AMGEN-JPNSP2013055559

PATIENT
  Age: 66 Year
  Sex: Male

DRUGS (3)
  1. GRAN [Suspect]
     Indication: SMALL CELL LUNG CANCER LIMITED STAGE
     Dosage: UNK
     Route: 065
  2. CISPLATIN [Suspect]
     Indication: SMALL CELL LUNG CANCER LIMITED STAGE
     Dosage: UNK
     Route: 065
  3. ETOPOSIDE [Suspect]
     Indication: SMALL CELL LUNG CANCER LIMITED STAGE
     Dosage: UNK
     Route: 065

REACTIONS (1)
  - Takayasu^s arteritis [Recovered/Resolved]
